FAERS Safety Report 19433121 (Version 1)
Quarter: 2021Q2

REPORT INFORMATION
  Report Type: Spontaneous
  Country: US (occurrence: US)
  Receive Date: 20210617
  Receipt Date: 20210617
  Transmission Date: 20210717
  Serious: Yes (Hospitalization, Other)
  Sender: FDA-Public Use
  Company Number: US-TEVA-2021-US-1922349

PATIENT
  Age: 15 Year
  Sex: Female
  Weight: 68.3 kg

DRUGS (4)
  1. IBUPROFEN. [Suspect]
     Active Substance: IBUPROFEN
     Indication: ABDOMINAL PAIN LOWER
  2. LISINOPRIL. [Suspect]
     Active Substance: LISINOPRIL
     Indication: GLOMERULONEPHRITIS MEMBRANOUS
     Dosage: 10 MILLIGRAM DAILY;
     Route: 065
  3. PREDNISONE. [Suspect]
     Active Substance: PREDNISONE
     Indication: GLOMERULONEPHRITIS MEMBRANOUS
     Route: 065
  4. IBUPROFEN. [Suspect]
     Active Substance: IBUPROFEN
     Indication: DYSMENORRHOEA
     Dosage: 1600?2400 MG/DAY
     Route: 065

REACTIONS (5)
  - Nephrotic syndrome [Recovered/Resolved]
  - Dizziness [Unknown]
  - Drug ineffective [Unknown]
  - Glomerulonephritis membranous [Recovered/Resolved]
  - Off label use [Unknown]
